FAERS Safety Report 6480586-6 (Version None)
Quarter: 2009Q4

REPORT INFORMATION
  Report Type: 
  Country: None (occurrence: None)
  Receive Date: 20091208
  Receipt Date: 20091126
  Transmission Date: 20100525
  Serious: Yes (Hospitalization)
  Sender: FDA-Public Use
  Company Number: GB-PFIZER INC-2009223676

PATIENT
  Age: 36 Year
  Sex: Female
  Weight: 54 kg

DRUGS (2)
  1. CHAMPIX [Suspect]
     Indication: SMOKING CESSATION THERAPY
     Dosage: 50 MG, UNK
     Route: 048
     Dates: start: 20090209, end: 20090316
  2. CITALOPRAM HYDROBROMIDE [Concomitant]
     Indication: DEPRESSION
     Dosage: 20 MG, UNK
     Route: 048
     Dates: start: 20070101

REACTIONS (3)
  - ANXIETY [None]
  - DEPRESSION [None]
  - MAJOR DEPRESSION [None]
